FAERS Safety Report 23688546 (Version 2)
Quarter: 2024Q2

REPORT INFORMATION
  Report Type: Report from Study
  Country: US (occurrence: US)
  Receive Date: 20240329
  Receipt Date: 20240409
  Transmission Date: 20240716
  Serious: Yes (Other)
  Sender: FDA-Public Use
  Company Number: US-002147023-NVSC2024US061965

PATIENT
  Age: 57 Year
  Sex: Female

DRUGS (1)
  1. MAYZENT [Suspect]
     Active Substance: SIPONIMOD
     Indication: Multiple sclerosis
     Dosage: 2 MG, QD
     Route: 048
     Dates: start: 20240214

REACTIONS (11)
  - Multiple sclerosis relapse [Recovering/Resolving]
  - Cerebral disorder [Recovering/Resolving]
  - Body temperature increased [Recovering/Resolving]
  - Oxygen saturation decreased [Recovering/Resolving]
  - Heart rate decreased [Recovering/Resolving]
  - Headache [Recovering/Resolving]
  - Incorrect dose administered [Recovering/Resolving]
  - Brain fog [Recovering/Resolving]
  - Product dose omission issue [Recovering/Resolving]
  - Wrong technique in product usage process [Recovering/Resolving]
  - Product storage error [Not Recovered/Not Resolved]

NARRATIVE: CASE EVENT DATE: 20240214
